FAERS Safety Report 9328645 (Version 1)
Quarter: 2013Q2

REPORT INFORMATION
  Report Type: Spontaneous
  Country: US (occurrence: US)
  Receive Date: 20130604
  Receipt Date: 20130604
  Transmission Date: 20140414
  Serious: No
  Sender: FDA-Public Use
  Company Number: US-SANOFI-AVENTIS-2012SA062248

PATIENT
  Age: 51 Year
  Sex: Female
  Weight: 68 kg

DRUGS (4)
  1. LANTUS [Suspect]
     Indication: DIABETES MELLITUS
     Dosage: 9-11 IU DAILY
     Route: 058
  2. COUMADIN [Suspect]
     Indication: THROMBOSIS
     Dosage: 2.5 MG ON MON, WED, FRI, SAT AND SUNDAY AND 5 MG ON TUE AND THURSDAY.
     Route: 065
     Dates: start: 201208
  3. PRAVASTATIN [Concomitant]
     Indication: BLOOD CHOLESTEROL
  4. OXYTOCIN [Concomitant]

REACTIONS (7)
  - Hyperhidrosis [Unknown]
  - Dehydration [Unknown]
  - Myalgia [Unknown]
  - Fatigue [Unknown]
  - Vomiting [Unknown]
  - Visual impairment [Unknown]
  - Speech disorder [Unknown]
